FAERS Safety Report 9343298 (Version 1)
Quarter: 2013Q2

REPORT INFORMATION
  Report Type: Spontaneous
  Country: FR (occurrence: FR)
  Receive Date: 20130612
  Receipt Date: 20130612
  Transmission Date: 20140414
  Serious: Yes (Other)
  Sender: FDA-Public Use
  Company Number: FR-AMGEN-FRASP2013040900

PATIENT
  Age: 22 Year
  Sex: Female

DRUGS (2)
  1. ENBREL [Suspect]
     Indication: ANKYLOSING SPONDYLITIS
     Dosage: ONCE WEEKLY
     Route: 065
     Dates: start: 2011, end: 20130531
  2. METOJECT [Concomitant]
     Dosage: UNK

REACTIONS (2)
  - Malaise [Unknown]
  - Uveitis [Unknown]
